FAERS Safety Report 15517276 (Version 1)
Quarter: 2018Q4

REPORT INFORMATION
  Report Type: Spontaneous
  Country: US (occurrence: US)
  Receive Date: 20181017
  Receipt Date: 20181017
  Transmission Date: 20190205
  Serious: Yes (Death)
  Sender: FDA-Public Use
  Company Number: US-UNITED THERAPEUTICS-UNT-2018-016821

PATIENT
  Age: 57 Year
  Sex: Female
  Weight: 57.14 kg

DRUGS (1)
  1. REMODULIN [Suspect]
     Active Substance: TREPROSTINIL
     Indication: PULMONARY ARTERIAL HYPERTENSION
     Dosage: 0.03125 ?G/KG, CONTINUING
     Route: 058
     Dates: start: 20180608

REACTIONS (1)
  - Death [Fatal]

NARRATIVE: CASE EVENT DATE: 20181012
